FAERS Safety Report 23146129 (Version 1)
Quarter: 2023Q4

REPORT INFORMATION
  Report Type: Spontaneous
  Country: BE (occurrence: BE)
  Receive Date: 20231104
  Receipt Date: 20231104
  Transmission Date: 20240109
  Serious: Yes (Other)
  Sender: FDA-Public Use
  Company Number: BE-JNJFOC-20231060660

PATIENT
  Age: 13 Year
  Sex: Female

DRUGS (4)
  1. DARZALEX [Suspect]
     Active Substance: DARATUMUMAB
     Indication: Nephrotic syndrome
     Dosage: 1G/1.73M2
     Route: 065
     Dates: start: 20220924
  2. DARZALEX [Suspect]
     Active Substance: DARATUMUMAB
     Dosage: 1G/1.73M2
     Route: 065
     Dates: start: 20220608
  3. OBINUTUZUMAB [Suspect]
     Active Substance: OBINUTUZUMAB
     Indication: Nephrotic syndrome
     Dosage: 1G/1.73M2
     Route: 065
     Dates: start: 20220730
  4. OBINUTUZUMAB [Suspect]
     Active Substance: OBINUTUZUMAB
     Dosage: 1G/1.73M2
     Route: 065
     Dates: start: 20220723

REACTIONS (3)
  - Thrombocytopenia [Unknown]
  - Neutropenia [Unknown]
  - Off label use [Unknown]
